FAERS Safety Report 10044358 (Version 1)
Quarter: 2014Q1

REPORT INFORMATION
  Report Type: Spontaneous
  Country: US (occurrence: US)
  Receive Date: 20140328
  Receipt Date: 20140328
  Transmission Date: 20141002
  Serious: Yes (Other)
  Sender: FDA-Public Use
  Company Number: US-PFIZER INC-2014085779

PATIENT
  Age: 67 Year
  Sex: Male

DRUGS (1)
  1. INLYTA [Suspect]
     Indication: RENAL CANCER
     Dosage: 5 MG, 2X/DAY
     Route: 048
     Dates: start: 20140228, end: 20140310

REACTIONS (10)
  - Confusional state [Unknown]
  - Dysarthria [Unknown]
  - Abdominal pain upper [Unknown]
  - Dizziness [Unknown]
  - Dysphonia [Unknown]
  - Nausea [Unknown]
  - Chills [Unknown]
  - Vomiting [Unknown]
  - Swollen tongue [Unknown]
  - Pharyngeal oedema [Unknown]
